FAERS Safety Report 4417008-2 (Version None)
Quarter: 2004Q3

REPORT INFORMATION
  Report Type: 
  Country: None (occurrence: None)
  Receive Date: 20040802
  Receipt Date: 20040721
  Transmission Date: 20050211
  Serious: Yes (Hospitalization)
  Sender: FDA-Public Use
  Company Number: HQWYE308621JUL04

PATIENT
  Age: 31 Year
  Sex: Male
  Weight: 102.15 kg

DRUGS (2)
  1. ADVIL [Suspect]
     Indication: MIGRAINE
     Dosage: 1 TABLET 1X PER 1 DAY, ORAL
     Route: 048
     Dates: start: 20040312, end: 20040312
  2. ALEVE [Suspect]
     Indication: MIGRAINE
     Dosage: ORAL
     Route: 048
     Dates: start: 20040312, end: 20040312

REACTIONS (2)
  - GASTRIC ULCER [None]
  - RECTAL HAEMORRHAGE [None]
